FAERS Safety Report 6834357-9 (Version None)
Quarter: 2010Q3

REPORT INFORMATION
  Report Type: 
  Country: None (occurrence: None)
  Receive Date: 20100712
  Receipt Date: 20071014
  Transmission Date: 20110219
  Serious: No
  Sender: FDA-Public Use
  Company Number: US-PFIZER INC-2007027530

PATIENT
  Sex: Female
  Weight: 68.04 kg

DRUGS (4)
  1. CHANTIX [Suspect]
     Indication: SMOKING CESSATION THERAPY
     Dates: start: 20070119
  2. OMEPRAZOLE [Concomitant]
     Indication: IRRITABLE BOWEL SYNDROME
  3. VITAMINS [Concomitant]
  4. CALCIUM [Concomitant]

REACTIONS (3)
  - CONSTIPATION [None]
  - DISORIENTATION [None]
  - DIZZINESS [None]
